FAERS Safety Report 16409928 (Version 2)
Quarter: 2019Q2

REPORT INFORMATION
  Report Type: Report from Study
  Country: CN (occurrence: CN)
  Receive Date: 20190610
  Receipt Date: 20190613
  Transmission Date: 20190711
  Serious: Yes (Death, Life-Threatening, Hospitalization)
  Sender: FDA-Public Use
  Company Number: CN-JNJFOC-20190602630

PATIENT
  Age: 46 Year
  Sex: Female
  Weight: 45 kg

DRUGS (3)
  1. PARA-AMINOSALICYLIC ACID [Suspect]
     Active Substance: AMINOSALICYLIC ACID
     Indication: TUBERCULOSIS
     Route: 065
  2. SIRTURO [Suspect]
     Active Substance: BEDAQUILINE FUMARATE
     Indication: TUBERCULOSIS
     Route: 048
  3. SIRTURO [Suspect]
     Active Substance: BEDAQUILINE FUMARATE
     Indication: TUBERCULOSIS
     Route: 048
     Dates: start: 20181221

REACTIONS (9)
  - Loss of consciousness [Unknown]
  - Gastrointestinal disorder [Unknown]
  - Generalised oedema [Unknown]
  - Abdominal pain [Unknown]
  - Pneumonia [Fatal]
  - Mobility decreased [Unknown]
  - Respiratory failure [Fatal]
  - Electrolyte imbalance [Unknown]
  - Eating disorder [Unknown]

NARRATIVE: CASE EVENT DATE: 201905
